FAERS Safety Report 24613829 (Version 1)
Quarter: 2024Q4

REPORT INFORMATION
  Report Type: Spontaneous
  Country: US (occurrence: None)
  Receive Date: 20241113
  Receipt Date: 20241113
  Transmission Date: 20250114
  Serious: No
  Sender: Public
  Company Number: None

PATIENT
  Age: 34 Year
  Sex: Female
  Weight: 81 kg

DRUGS (1)
  1. MONISTAT [Suspect]
     Active Substance: MICONAZOLE NITRATE
     Dosage: DILY VAGINAL
     Route: 067
     Dates: start: 20241112, end: 20241112

REACTIONS (2)
  - Burning sensation [None]
  - Vulvovaginal burning sensation [None]

NARRATIVE: CASE EVENT DATE: 20241113
